FAERS Safety Report 7633679-1 (Version None)
Quarter: 2011Q3

REPORT INFORMATION
  Report Type: 
  Country: None (occurrence: None)
  Receive Date: 20110725
  Receipt Date: 20110718
  Transmission Date: 20111222
  Serious: Yes (Other)
  Sender: FDA-Public Use
  Company Number: CN-GLAXOSMITHKLINE-B0734750A

PATIENT
  Age: 52 Year
  Sex: Female

DRUGS (6)
  1. PYRAZINAMIDE [Concomitant]
     Indication: PULMONARY TUBERCULOSIS
     Dosage: 1G PER DAY
     Route: 048
     Dates: start: 20100605
  2. LEVOFLOXACIN [Concomitant]
     Indication: PULMONARY TUBERCULOSIS
     Dosage: .3G PER DAY
     Route: 042
     Dates: start: 20100605
  3. RIFAMYCIN SODIUM [Concomitant]
     Indication: PULMONARY TUBERCULOSIS
     Dosage: .5G PER DAY
     Route: 042
     Dates: start: 20100605
  4. ETHAMBUTOL HYDROCHLORIDE [Concomitant]
     Indication: PULMONARY TUBERCULOSIS
     Dosage: .5G PER DAY
     Route: 048
     Dates: start: 20100605
  5. ISONIAZID [Concomitant]
     Indication: PULMONARY TUBERCULOSIS
     Dosage: .2G PER DAY
     Route: 048
     Dates: start: 20100605
  6. CEFTAZIDIME [Suspect]
     Indication: ENTEROBACTER INFECTION
     Dosage: 2G PER DAY
     Route: 042
     Dates: start: 20100618, end: 20100624

REACTIONS (3)
  - CONFUSIONAL STATE [None]
  - MENTAL DISORDER [None]
  - DELIRIUM [None]
